FAERS Safety Report 8623070 (Version 5)
Quarter: 2012Q4

REPORT INFORMATION
  Report Type: 
  Country: CO (occurrence: CO)
  Receive Date: 20120620
  Receipt Date: 20121120
  Transmission Date: 20130627
  Serious: Yes (Other)
  Sender: FDA-Public Use
  Company Number: CO-AMGEN-COLSP2012036662

PATIENT
  Age: 68 Year
  Sex: Male

DRUGS (11)
  1. ENBREL [Suspect]
     Indication: ANKYLOSING SPONDYLITIS
     Dosage: 50 mg, qwk
     Route: 058
     Dates: start: 20120522
  2. ENBREL [Suspect]
     Indication: PRODUCT USED FOR UNKNOWN INDICATION
  3. MEDROL                             /00049601/ [Concomitant]
     Indication: INFLAMMATION
     Dosage: 1 tablet once a day orally
     Route: 048
  4. GALVUS [Concomitant]
     Indication: TYPE 2 DIABETES MELLITUS
     Dosage: 50mg/1,000mg twice per day orally
     Route: 048
  5. LOSARTAN [Concomitant]
     Indication: HYPERTENSION
     Dosage: 50 mg 1 tablet daily orally
     Route: 048
  6. AMLODIPINE BESILATE [Concomitant]
     Indication: HYPERTENSION
     Dosage: 1 tablet daily orally
     Route: 048
  7. ZOLPIDEM [Concomitant]
     Indication: SLEEP DISORDER
     Dosage: 1 tablet per day (night) orally
     Route: 048
  8. MOBIC [Concomitant]
     Indication: INFLAMMATION
     Dosage: 15 mg, 1 tablet daily orally
     Route: 048
  9. DORIXINA                           /00729301/ [Concomitant]
     Indication: INFLAMMATION
     Dosage: 1 tablet per day (night) orally
     Route: 048
  10. DORIXINA                           /00729301/ [Concomitant]
     Indication: PAIN
     Dosage: UNK
  11. LYRICA [Concomitant]
     Indication: PAIN
     Dosage: UNK
     Route: 048
     Dates: start: 201203

REACTIONS (5)
  - Anal fistula [Recovering/Resolving]
  - Spondylitis [Unknown]
  - Haematochezia [Recovered/Resolved]
  - Pain [Not Recovered/Not Resolved]
  - Drug ineffective [Not Recovered/Not Resolved]
